FAERS Safety Report 6310372-9 (Version None)
Quarter: 2009Q3

REPORT INFORMATION
  Report Type: 
  Country: None (occurrence: None)
  Receive Date: 20090814
  Receipt Date: 20090813
  Transmission Date: 20100115
  Serious: Yes (Death, Hospitalization, Other)
  Sender: FDA-Public Use
  Company Number: CA-ASTRAZENECA-2006UW00736

PATIENT
  Age: 76 Year
  Sex: Female
  Weight: 63.5 kg

DRUGS (3)
  1. SEROQUEL [Suspect]
     Route: 048
     Dates: start: 20051223
  2. SEROQUEL [Suspect]
     Route: 048
     Dates: start: 20050101, end: 20051201
  3. ARICEPT [Concomitant]
     Indication: DEMENTIA ALZHEIMER'S TYPE
     Dates: start: 20000101, end: 20060609

REACTIONS (9)
  - BRONCHOPNEUMONIA [None]
  - CORONARY ARTERY THROMBOSIS [None]
  - DECUBITUS ULCER [None]
  - GRAND MAL CONVULSION [None]
  - MUSCLE TWITCHING [None]
  - PNEUMONIA ASPIRATION [None]
  - PULMONARY EMBOLISM [None]
  - PYREXIA [None]
  - TARDIVE DYSKINESIA [None]
